FAERS Safety Report 9625597 (Version 1)
Quarter: 2013Q4

REPORT INFORMATION
  Report Type: Spontaneous
  Country: US (occurrence: None)
  Receive Date: 20131015
  Receipt Date: 20131015
  Transmission Date: 20140711
  Serious: No
  Sender: FDA-Public Use
  Company Number: None

PATIENT
  Age: 53 Year
  Sex: Male

DRUGS (3)
  1. XELJANZ [Suspect]
     Indication: RHEUMATOID ARTHRITIS
     Dosage: 1 TABLET BID ORAL
     Route: 048
     Dates: start: 201306
  2. MORPHINE SULFATE [Concomitant]
  3. PREDNISONE [Concomitant]

REACTIONS (1)
  - Rash [None]
